FAERS Safety Report 7376338-5 (Version None)
Quarter: 2011Q1

REPORT INFORMATION
  Report Type: 
  Country: None (occurrence: None)
  Receive Date: 20110325
  Receipt Date: 20110317
  Transmission Date: 20110831
  Serious: Yes (Death)
  Sender: FDA-Public Use
  Company Number: US-MPIJNJ-2011-01111

PATIENT
  Sex: Male

DRUGS (1)
  1. VELCADE [Suspect]
     Indication: LYMPHOMA

REACTIONS (1)
  - DEATH [None]
